FAERS Safety Report 4896388-8 (Version None)
Quarter: 2006Q1

REPORT INFORMATION
  Report Type: 
  Country: None (occurrence: None)
  Receive Date: 20060126
  Receipt Date: 20060113
  Transmission Date: 20060701
  Serious: Yes (Hospitalization)
  Sender: FDA-Public Use
  Company Number: 2006009127

PATIENT
  Age: 46 Year
  Sex: Female

DRUGS (4)
  1. AZITHROMYCIN [Suspect]
     Indication: ILL-DEFINED DISORDER
     Dosage: 500 MG, ORAL
     Route: 048
     Dates: start: 20051215, end: 20051217
  2. FLOMOX            (CEFCAPENE PIVOXIL HYDROCHLORIDE) [Concomitant]
  3. CARBENIN              (BETAMIPRON, PANIPENEM) [Concomitant]
  4. MINOCYCLINE HCL [Concomitant]

REACTIONS (4)
  - BODY TEMPERATURE INCREASED [None]
  - EOSINOPHIL COUNT INCREASED [None]
  - UNEVALUABLE EVENT [None]
  - WHITE BLOOD CELL COUNT INCREASED [None]
